FAERS Safety Report 14380777 (Version 1)
Quarter: 2018Q1

REPORT INFORMATION
  Report Type: Spontaneous
  Country: US (occurrence: US)
  Receive Date: 20180112
  Receipt Date: 20180112
  Transmission Date: 20180509
  Serious: No
  Sender: FDA-Public Use
  Company Number: US-ALKERMES INC.-ALK-2017-004664

PATIENT
  Age: 56 Year
  Sex: Male

DRUGS (1)
  1. ARISTADA [Suspect]
     Active Substance: ARIPIPRAZOLE LAUROXIL
     Indication: SCHIZOPHRENIA
     Dosage: 882 MG, QMO
     Route: 030
     Dates: start: 20170802

REACTIONS (4)
  - Drug dose omission [Unknown]
  - Hallucination, auditory [Unknown]
  - Dissociation [Recovering/Resolving]
  - Mental status changes [Unknown]

NARRATIVE: CASE EVENT DATE: 2017
